FAERS Safety Report 7964822-2 (Version None)
Quarter: 2011Q4

REPORT INFORMATION
  Report Type: 
  Country: None (occurrence: None)
  Receive Date: 20111208
  Receipt Date: 20111125
  Transmission Date: 20120403
  Serious: Yes (Other)
  Sender: FDA-Public Use
  Company Number: PHHY2011FR71808

PATIENT
  Sex: Male
  Weight: 60 kg

DRUGS (3)
  1. FEMARA [Suspect]
     Indication: BODY HEIGHT BELOW NORMAL
     Dosage: 1 DF, QD
     Route: 048
     Dates: start: 20110110, end: 20110910
  2. UNSPECIFIED GROWTH HORMONE [Suspect]
     Indication: BODY HEIGHT BELOW NORMAL
     Dosage: UNK UKN, UNK
  3. PROTON PUMP INHIBITORS [Concomitant]

REACTIONS (4)
  - GASTROOESOPHAGEAL REFLUX DISEASE [None]
  - BACK PAIN [None]
  - RESPIRATORY RATE INCREASED [None]
  - CHEST PAIN [None]
